FAERS Safety Report 10100291 (Version 1)
Quarter: 2014Q2

REPORT INFORMATION
  Report Type: Report from Study
  Country: US (occurrence: US)
  Receive Date: 20140423
  Receipt Date: 20140423
  Transmission Date: 20141212
  Serious: Yes (Other)
  Sender: FDA-Public Use
  Company Number: PHEH2014US007369

PATIENT
  Sex: Female

DRUGS (2)
  1. EXFORGE [Suspect]
     Dosage: 1 DF (160 OF VALS AND 10 OF AMLO), DAILY
  2. HYDROCHLOROTHIAZIDE [Concomitant]

REACTIONS (4)
  - Cerebrovascular accident [Unknown]
  - Blood pressure increased [Recovering/Resolving]
  - Dizziness [Unknown]
  - Headache [Unknown]
